FAERS Safety Report 9607051 (Version 2)
Quarter: 2013Q4

REPORT INFORMATION
  Report Type: Spontaneous
  Country: DE (occurrence: DE)
  Receive Date: 20131009
  Receipt Date: 20131108
  Transmission Date: 20140711
  Serious: Yes (Other)
  Sender: FDA-Public Use
  Company Number: DE-ROCHE-1286317

PATIENT
  Sex: Male

DRUGS (6)
  1. PULMOZYME [Suspect]
     Indication: PRODUCT USED FOR UNKNOWN INDICATION
     Route: 065
  2. INOVELON [Concomitant]
  3. ORFIRIL [Concomitant]
  4. OSPOLOT [Concomitant]
     Route: 065
  5. ASTONIN H [Concomitant]
  6. PREDNISOLON [Concomitant]

REACTIONS (1)
  - Pneumonia [Not Recovered/Not Resolved]
